FAERS Safety Report 7476025-9 (Version None)
Quarter: 2011Q2

REPORT INFORMATION
  Report Type: 
  Country: None (occurrence: None)
  Receive Date: 20110505
  Receipt Date: 20110429
  Transmission Date: 20111010
  Serious: Yes (Hospitalization, Other)
  Sender: FDA-Public Use
  Company Number: 2010AC000323

PATIENT
  Age: 73 Year
  Sex: Male

DRUGS (1)
  1. DIGOXIN [Suspect]
     Dosage: 0.125 MG; QD; PO
     Route: 048
     Dates: start: 20060816, end: 20090528

REACTIONS (9)
  - PAIN [None]
  - ECONOMIC PROBLEM [None]
  - MULTIPLE INJURIES [None]
  - ANXIETY [None]
  - CARDIAC FAILURE CONGESTIVE [None]
  - ATRIAL FIBRILLATION [None]
  - CARDIAC DISORDER [None]
  - CORONARY ARTERY OCCLUSION [None]
  - ILL-DEFINED DISORDER [None]
